FAERS Safety Report 15316519 (Version 2)
Quarter: 2018Q3

REPORT INFORMATION
  Report Type: Report from Study
  Country: US (occurrence: US)
  Receive Date: 20180824
  Receipt Date: 20180830
  Transmission Date: 20181010
  Serious: Yes (Hospitalization, Other)
  Sender: FDA-Public Use
  Company Number: US-MALLINCKRODT-T201803236

PATIENT
  Sex: Female
  Weight: 10 kg

DRUGS (1)
  1. REPOSITORY CORTICOTROPIN INJECTION [Suspect]
     Active Substance: CORTICOTROPIN
     Indication: INFANTILE SPASMS
     Dosage: 0 .44 ML TWICE DAILY FOR 14 DAYS THEN TAPER SCHEDULE
     Route: 030
     Dates: start: 20180720, end: 20180816

REACTIONS (10)
  - Urinary tract infection [Unknown]
  - Heart rate irregular [Unknown]
  - Blood pressure increased [Recovering/Resolving]
  - Gastrointestinal tube insertion [Unknown]
  - Drug ineffective [Unknown]
  - Gastrointestinal disorder [Unknown]
  - Blood potassium decreased [Unknown]
  - Oesophagogastric fundoplasty [Unknown]
  - Diarrhoea [Unknown]
  - Pneumonia aspiration [Unknown]

NARRATIVE: CASE EVENT DATE: 2018
